FAERS Safety Report 17889720 (Version 1)
Quarter: 2020Q2

REPORT INFORMATION
  Report Type: Spontaneous
  Country: US (occurrence: US)
  Receive Date: 20200612
  Receipt Date: 20200612
  Transmission Date: 20200714
  Serious: Yes (Other)
  Sender: FDA-Public Use
  Company Number: None

PATIENT
  Age: 67 Year
  Sex: Female
  Weight: 64.8 kg

DRUGS (6)
  1. ALENDRONATE SODIUM. [Suspect]
     Active Substance: ALENDRONATE SODIUM
     Indication: OSTEOPOROSIS PROPHYLAXIS
     Dosage: ?          QUANTITY:1 TABLET(S);OTHER FREQUENCY:1 TABLET WEEKLY;?
     Route: 048
     Dates: start: 20200611, end: 20200611
  2. DUCOSATE SODIUM [Concomitant]
  3. CVS ONE DAILY WOMEN^S MULTIVITAMIN/MULTIMINERAL SUPPLEMENT [Concomitant]
  4. SIMVESTATIN [Concomitant]
  5. GABAPENTIN. [Concomitant]
     Active Substance: GABAPENTIN
  6. MELOXICAM. [Concomitant]
     Active Substance: MELOXICAM

REACTIONS (4)
  - Upper respiratory tract irritation [None]
  - Gastrooesophageal reflux disease [None]
  - Oropharyngeal pain [None]
  - Diarrhoea [None]

NARRATIVE: CASE EVENT DATE: 20200611
